FAERS Safety Report 5239166-2 (Version None)
Quarter: 2007Q1

REPORT INFORMATION
  Report Type: 
  Country: None (occurrence: None)
  Receive Date: 20061208
  Receipt Date: 20050328
  Transmission Date: 20070707
  Serious: Yes (Other)
  Sender: FDA-Public Use
  Company Number: 2005UW04035

PATIENT
  Age: 51 Year
  Sex: Female
  Weight: 57.152 kg

DRUGS (2)
  1. CRESTOR [Suspect]
     Indication: HYPERCHOLESTEROLAEMIA
     Dosage: 10 MG DAILY PO
     Route: 048
     Dates: start: 20050301
  2. ADVAIR DISKUS 100/50 [Concomitant]

REACTIONS (3)
  - EYELID DISORDER [None]
  - EYELID FUNCTION DISORDER [None]
  - TIC [None]
